FAERS Safety Report 6446904-X (Version None)
Quarter: 2009Q4

REPORT INFORMATION
  Report Type: 
  Country: None (occurrence: None)
  Receive Date: 20091110
  Receipt Date: 20091001
  Transmission Date: 20100525
  Serious: Yes (Other)
  Sender: FDA-Public Use
  Company Number: 1000008609

PATIENT
  Sex: Female

DRUGS (2)
  1. SAVELLA [Suspect]
     Indication: FIBROMYALGIA
     Dosage: (1 IN 1 D), ORAL
     Route: 048
  2. ZOLOFT [Concomitant]

REACTIONS (1)
  - SEROTONIN SYNDROME [None]
